FAERS Safety Report 5490675-0 (Version None)
Quarter: 2007Q4

REPORT INFORMATION
  Report Type: 
  Country: None (occurrence: None)
  Receive Date: 20071019
  Receipt Date: 20071012
  Transmission Date: 20080405
  Serious: Yes (Other)
  Sender: FDA-Public Use
  Company Number: CA-ASTRAZENECA-2007UW24047

PATIENT
  Age: 51 Year
  Sex: Female

DRUGS (3)
  1. CRESTOR [Suspect]
     Dosage: DOSE = 1 DOSAGE FORM
     Route: 048
  2. ASPIRIN [Concomitant]
  3. OMEGA 3 [Concomitant]

REACTIONS (9)
  - AGITATION [None]
  - DIZZINESS [None]
  - EMOTIONAL DISTRESS [None]
  - HYPOACUSIS [None]
  - HYPOAESTHESIA [None]
  - MYALGIA [None]
  - NAUSEA [None]
  - VERTIGO [None]
  - VOMITING [None]
